FAERS Safety Report 9149252 (Version 1)
Quarter: 2013Q1

REPORT INFORMATION
  Report Type: Spontaneous
  Country: US (occurrence: US)
  Receive Date: 20130308
  Receipt Date: 20130308
  Transmission Date: 20140127
  Serious: No
  Sender: FDA-Public Use
  Company Number: US-PFIZER INC-2013079079

PATIENT
  Age: 46 Year
  Sex: Female
  Weight: 132 kg

DRUGS (3)
  1. CHANTIX [Suspect]
     Indication: SMOKING CESSATION THERAPY
     Dosage: 0.5MG DAILY
     Dates: start: 201302, end: 2013
  2. CHANTIX [Suspect]
     Dosage: 0.5 MG, 2X/DAY
     Dates: start: 2013, end: 2013
  3. CHANTIX [Suspect]
     Dosage: 0.5 MG, UNK
     Dates: start: 2013

REACTIONS (3)
  - Nausea [Not Recovered/Not Resolved]
  - Pyrexia [Unknown]
  - Influenza [Unknown]
